FAERS Safety Report 19126811 (Version 1)
Quarter: 2021Q2

REPORT INFORMATION
  Report Type: Other
  Country: TR (occurrence: TR)
  Receive Date: 20210412
  Receipt Date: 20210412
  Transmission Date: 20210717
  Serious: Yes (Other)
  Sender: FDA-Public Use
  Company Number: TR-B.BRAUN MEDICAL INC.-2109232

PATIENT
  Age: 67 Year
  Sex: Male

DRUGS (2)
  1. MANNITOL SOLUTION FOR UROLOGIC IRRIGATION [Suspect]
     Active Substance: MANNITOL
     Route: 042
  2. TOPICAL ANESTHESIA [Concomitant]

REACTIONS (1)
  - Cataract nuclear [None]
